FAERS Safety Report 17561939 (Version 1)
Quarter: 2020Q1

REPORT INFORMATION
  Report Type: Spontaneous
  Country: BE (occurrence: BE)
  Receive Date: 20200319
  Receipt Date: 20200319
  Transmission Date: 20200409
  Serious: Yes (Death, Hospitalization)
  Sender: FDA-Public Use
  Company Number: BE-TEVA-2020-BE-1203607

PATIENT
  Age: 7 Decade
  Sex: Female

DRUGS (2)
  1. CARBOPLATIN. [Suspect]
     Active Substance: CARBOPLATIN
     Indication: OESOPHAGEAL ADENOCARCINOMA
     Dosage: NEOADJUVANT CHEMO-RADIOTHERAPY
     Route: 065
  2. PACLITAXEL. [Suspect]
     Active Substance: PACLITAXEL
     Indication: OESOPHAGEAL ADENOCARCINOMA
     Dosage: NEOADJUVANT CHEMO-RADIOTHERAPY
     Route: 065

REACTIONS (8)
  - Respiratory acidosis [Fatal]
  - Pulmonary embolism [Fatal]
  - Pulmonary hypertension [Fatal]
  - Bronchial fistula [Fatal]
  - Respiratory failure [Fatal]
  - Empyema [Fatal]
  - Pulmonary sepsis [Fatal]
  - Hypercapnia [Fatal]
